FAERS Safety Report 7584923-0 (Version None)
Quarter: 2011Q2

REPORT INFORMATION
  Report Type: 
  Country: None (occurrence: None)
  Receive Date: 20110630
  Receipt Date: 20110623
  Transmission Date: 20111010
  Serious: Yes (Other)
  Sender: FDA-Public Use
  Company Number: US-GILEAD-2011-0040850

PATIENT
  Sex: Female
  Weight: 73.094 kg

DRUGS (15)
  1. LETAIRIS [Suspect]
     Indication: PULMONARY HYPERTENSION
     Route: 048
     Dates: start: 20101119, end: 20110616
  2. SPIRIVA [Concomitant]
  3. XANAX [Concomitant]
  4. FLUOXETINE [Concomitant]
  5. PLAVIX [Suspect]
  6. PRAVASTATIN [Suspect]
  7. ADVAIR DISKUS 100/50 [Concomitant]
  8. AMBIEN [Concomitant]
  9. LETAIRIS [Suspect]
     Indication: CHRONIC OBSTRUCTIVE PULMONARY DISEASE
  10. OXYGEN [Concomitant]
  11. HYDROCHLOROTHIAZIDE [Concomitant]
  12. TRIAMTERENE [Concomitant]
  13. FERROUS SULFATE TAB [Concomitant]
  14. TYLENOL-500 [Suspect]
  15. NAPROXEN (ALEVE) [Concomitant]

REACTIONS (3)
  - CONTUSION [None]
  - LIVER FUNCTION TEST ABNORMAL [None]
  - MUSCLE SPASMS [None]
